FAERS Safety Report 9671932 (Version 2)
Quarter: 2013Q4

REPORT INFORMATION
  Report Type: Spontaneous
  Country: GB (occurrence: GB)
  Receive Date: 20131106
  Receipt Date: 20131113
  Transmission Date: 20140711
  Serious: Yes (Other)
  Sender: FDA-Public Use
  Company Number: GB-PFIZER INC-2013313706

PATIENT
  Age: 40 Year
  Sex: Female

DRUGS (2)
  1. SERTRALINE HCL [Suspect]
     Indication: BIPOLAR DISORDER
     Dosage: 150 MG, UNK
     Route: 048
  2. QUETIAPINE FUMARATE [Suspect]
     Dosage: 300 MG, UNK
     Route: 048

REACTIONS (1)
  - Stillbirth [Unknown]
